FAERS Safety Report 6519885-8 (Version None)
Quarter: 2009Q4

REPORT INFORMATION
  Report Type: 
  Country: None (occurrence: None)
  Receive Date: 20091229
  Receipt Date: 20091216
  Transmission Date: 20100525
  Serious: Yes (Other)
  Sender: FDA-Public Use
  Company Number: US-JNJCH-2009032843

PATIENT
  Age: 20 Month
  Sex: Male

DRUGS (1)
  1. DEXTROMETHORPHAN [Suspect]
     Indication: DRUG USE FOR UNKNOWN INDICATION
     Dosage: TEXT:150MG (11.5MG/KG)
     Route: 048

REACTIONS (5)
  - DRUG TOXICITY [None]
  - HYPERTONIA [None]
  - HYPOTONIA [None]
  - MYDRIASIS [None]
  - WRONG DRUG ADMINISTERED [None]
